FAERS Safety Report 9555335 (Version 1)
Quarter: 2013Q3

REPORT INFORMATION
  Report Type: Spontaneous
  Country: US (occurrence: US)
  Receive Date: 20130926
  Receipt Date: 20130926
  Transmission Date: 20140515
  Serious: No
  Sender: FDA-Public Use
  Company Number: US-BAYER-2013-116331

PATIENT
  Age: 52 Year
  Sex: Female
  Weight: 124 kg

DRUGS (1)
  1. ALEVE CAPLET [Suspect]
     Indication: BACK PAIN
     Dosage: UNK DF, UNK
     Route: 048

REACTIONS (3)
  - Drug ineffective [None]
  - Extra dose administered [None]
  - Extra dose administered [None]
